FAERS Safety Report 9399319 (Version 2)
Quarter: 2013Q3

REPORT INFORMATION
  Report Type: Spontaneous
  Country: US (occurrence: US)
  Receive Date: 20130715
  Receipt Date: 20130826
  Transmission Date: 20140515
  Serious: Yes (Other)
  Sender: FDA-Public Use
  Company Number: US-PFIZER INC-2013204313

PATIENT
  Sex: Female

DRUGS (3)
  1. NEURONTIN [Suspect]
     Indication: CONVULSION
     Dosage: UNK
  2. LEVETIRACETAM [Suspect]
     Indication: CONVULSION
     Dosage: UNK
  3. ZONEGRAN [Suspect]
     Indication: CONVULSION
     Dosage: UNK

REACTIONS (1)
  - Convulsion [Unknown]
